FAERS Safety Report 24039838 (Version 1)
Quarter: 2024Q3

REPORT INFORMATION
  Report Type: Spontaneous
  Country: US (occurrence: US)
  Receive Date: 20240702
  Receipt Date: 20240702
  Transmission Date: 20241017
  Serious: Yes (Hospitalization)
  Sender: MYLAN
  Company Number: US-MYLANLABS-2024M1058146

PATIENT
  Age: 43 Year
  Sex: Female

DRUGS (1)
  1. METFORMIN [Suspect]
     Active Substance: METFORMIN HYDROCHLORIDE
     Indication: Product used for unknown indication
     Dosage: 360 DOSAGE FORM, INGESTED 360 TABLETS
     Route: 048

REACTIONS (3)
  - Intentional overdose [Recovering/Resolving]
  - Hypoglycaemia [Unknown]
  - Metabolic acidosis [Recovering/Resolving]
